FAERS Safety Report 6785529-3 (Version None)
Quarter: 2010Q2

REPORT INFORMATION
  Report Type: 
  Country: None (occurrence: None)
  Receive Date: 20100623
  Receipt Date: 20100304
  Transmission Date: 20101027
  Serious: Yes (Hospitalization, Other)
  Sender: FDA-Public Use
  Company Number: US-ASTRAZENECA-2007UW02052

PATIENT
  Age: 17289 Day
  Sex: Female
  Weight: 66.6 kg

DRUGS (39)
  1. SEROQUEL [Suspect]
     Indication: PSYCHOTIC DISORDER
     Route: 048
     Dates: start: 20040701
  2. SEROQUEL [Suspect]
     Indication: ANXIETY
     Route: 048
     Dates: start: 20040701
  3. SEROQUEL [Suspect]
     Indication: SCHIZOPHRENIA, PARANOID TYPE
     Route: 048
     Dates: start: 20040701
  4. SEROQUEL [Suspect]
     Dosage: 25MG-600MG
     Route: 048
     Dates: start: 20041207
  5. SEROQUEL [Suspect]
     Dosage: 25MG-600MG
     Route: 048
     Dates: start: 20041207
  6. SEROQUEL [Suspect]
     Dosage: 25MG-600MG
     Route: 048
     Dates: start: 20041207
  7. SEROQUEL [Suspect]
     Dosage: 100 MG-300 MG
     Route: 048
     Dates: start: 20041119
  8. SEROQUEL [Suspect]
     Dosage: 100 MG-300 MG
     Route: 048
     Dates: start: 20041119
  9. SEROQUEL [Suspect]
     Dosage: 100 MG-300 MG
     Route: 048
     Dates: start: 20041119
  10. SERTRALINE HCL [Concomitant]
  11. BUSPAR [Concomitant]
     Dosage: 15 MG-90 MG
     Dates: start: 20041020
  12. XANAX [Concomitant]
  13. ZOLOFT [Concomitant]
     Dates: start: 20040917
  14. METFORMIN [Concomitant]
  15. VYTORIN [Concomitant]
     Dosage: 10/40
     Dates: start: 20041217
  16. GLIPIZIDE [Concomitant]
  17. GEODON [Concomitant]
     Dates: start: 20041021
  18. TRAZODONE HCL [Concomitant]
     Dates: start: 20041006
  19. RISPERDAL [Concomitant]
     Dates: start: 20040917
  20. ZYPREXA [Concomitant]
  21. SERZONE [Concomitant]
  22. ACETAMINOPHEN [Concomitant]
  23. BISMUTH SUBSALICYLATE [Concomitant]
  24. DIAZEPAM [Concomitant]
  25. DICYCLOMINE [Concomitant]
  26. COMPAZINE [Concomitant]
  27. LOPERAMIDE [Concomitant]
  28. NICOTINE POLACRILEX [Concomitant]
  29. TRICOR [Concomitant]
     Dates: start: 20060815
  30. OXYMETAZOLINE HCL [Concomitant]
  31. SIMETHICONE [Concomitant]
  32. THIAMINE [Concomitant]
  33. TRIAMINIC SRT [Concomitant]
  34. ALBUTEROL [Concomitant]
  35. CIPROFLOXACIN [Concomitant]
  36. GLIMEPIRIDE [Concomitant]
  37. IBUPROFEN [Concomitant]
  38. MILK OF MAGNESIA TAB [Concomitant]
  39. BUSPIRONE HCL [Concomitant]
     Dates: start: 20041020

REACTIONS (12)
  - ALCOHOLISM [None]
  - ANXIETY [None]
  - BACK PAIN [None]
  - CORONARY ARTERY DISEASE [None]
  - DRUG ABUSE [None]
  - DYSTHYMIC DISORDER [None]
  - GALACTORRHOEA [None]
  - SCHIZOAFFECTIVE DISORDER [None]
  - SCHIZOPHRENIA, UNDIFFERENTIATED TYPE [None]
  - SPINAL OSTEOARTHRITIS [None]
  - SUBSTANCE ABUSE [None]
  - TYPE 2 DIABETES MELLITUS [None]
